FAERS Safety Report 5967542-9 (Version None)
Quarter: 2008Q4

REPORT INFORMATION
  Report Type: 
  Country: None (occurrence: None)
  Receive Date: 20081125
  Receipt Date: 20081117
  Transmission Date: 20090506
  Serious: Yes (Other)
  Sender: FDA-Public Use
  Company Number: US-PFIZER INC-2008097383

PATIENT
  Sex: Female

DRUGS (2)
  1. XALATAN [Suspect]
  2. TOBRADEX [Suspect]

REACTIONS (4)
  - EYE OPERATION [None]
  - EYELID DISORDER [None]
  - MUSCULAR WEAKNESS [None]
  - URTICARIA [None]
